FAERS Safety Report 17879659 (Version 1)
Quarter: 2020Q2

REPORT INFORMATION
  Report Type: Spontaneous
  Country: US (occurrence: US)
  Receive Date: 20200610
  Receipt Date: 20200610
  Transmission Date: 20200714
  Serious: No
  Sender: FDA-Public Use
  Company Number: US-MYLANLABS-2020M1053805

PATIENT
  Age: 63 Year
  Sex: Female
  Weight: 65 kg

DRUGS (2)
  1. ESTRADIOL TRANSDERMAL SYSTEM [Suspect]
     Active Substance: ESTRADIOL
     Dosage: 0.075 MILLIGRAM, QD
     Route: 062
  2. ESTRADIOL TRANSDERMAL SYSTEM [Suspect]
     Active Substance: ESTRADIOL
     Indication: PRODUCT USED FOR UNKNOWN INDICATION
     Dosage: 0.075 MILLIGRAM, QD
     Route: 062
     Dates: start: 20200204, end: 20200602

REACTIONS (6)
  - Application site reaction [Recovered/Resolved]
  - Product quality issue [Unknown]
  - Application site pain [Recovered/Resolved]
  - Application site rash [Recovered/Resolved]
  - Application site erythema [Recovered/Resolved]
  - Application site pruritus [Recovered/Resolved]

NARRATIVE: CASE EVENT DATE: 20200522
